FAERS Safety Report 5265329-6 (Version None)
Quarter: 2007Q1

REPORT INFORMATION
  Report Type: 
  Country: None (occurrence: None)
  Receive Date: 20061213
  Receipt Date: 20040330
  Transmission Date: 20070707
  Serious: Yes (Hospitalization)
  Sender: FDA-Public Use
  Company Number: 2004UW06360

PATIENT
  Age: 63 Year
  Sex: Female

DRUGS (4)
  1. IRESSA [Suspect]
     Dosage: 250 MG PO
     Route: 048
     Dates: start: 20030101, end: 20040301
  2. BRONCHODILATORS [Concomitant]
  3. ANTIBIOTICS [Concomitant]
  4. STEROIDS [Concomitant]

REACTIONS (1)
  - INTERSTITIAL LUNG DISEASE [None]
